FAERS Safety Report 5526102-4 (Version None)
Quarter: 2007Q4

REPORT INFORMATION
  Report Type: 
  Country: None (occurrence: None)
  Receive Date: 20071120
  Receipt Date: 20071106
  Transmission Date: 20080405
  Serious: Yes (Other)
  Sender: FDA-Public Use
  Company Number: 163751ISR

PATIENT
  Age: 24 Year
  Sex: Male

DRUGS (1)
  1. LAMOTRIGINE [Suspect]
     Indication: EPILEPSY
     Dosage: 400 MG (200 MG, 2 IN 1 D) ORAL
     Route: 048

REACTIONS (2)
  - EPILEPSY [None]
  - REACTION TO DRUG EXCIPIENTS [None]
